FAERS Safety Report 7998401-8 (Version None)
Quarter: 2011Q4

REPORT INFORMATION
  Report Type: 
  Country: None (occurrence: None)
  Receive Date: 20111221
  Receipt Date: 20110922
  Transmission Date: 20120403
  Serious: No
  Sender: FDA-Public Use
  Company Number: US-GLAXOSMITHKLINE-A0945631A

PATIENT
  Age: 78 Year
  Sex: Female

DRUGS (9)
  1. GLIPIZIDE [Concomitant]
  2. MICARDIS [Concomitant]
  3. PLAVIX [Concomitant]
  4. AMITRIPTYLINE HCL [Concomitant]
  5. METFORMIN HCL [Concomitant]
     Dates: end: 20110829
  6. BACLOFEN [Concomitant]
  7. CLONAZEPAM [Concomitant]
  8. LOVAZA [Suspect]
     Indication: CARDIAC DISORDER
     Dosage: 2CAP TWICE PER DAY
     Route: 048
     Dates: start: 20090101, end: 20110829
  9. COREG [Concomitant]

REACTIONS (11)
  - HYPOTENSION [None]
  - FAECAL INCONTINENCE [None]
  - DIARRHOEA [None]
  - ABDOMINAL DISCOMFORT [None]
  - INCORRECT STORAGE OF DRUG [None]
  - BLOOD GLUCOSE DECREASED [None]
  - MENTAL IMPAIRMENT [None]
  - MALAISE [None]
  - DYSGEUSIA [None]
  - HEAD DISCOMFORT [None]
  - BEDRIDDEN [None]
